FAERS Safety Report 4443371-2 (Version None)
Quarter: 2004Q3

REPORT INFORMATION
  Report Type: 
  Country: None (occurrence: None)
  Receive Date: 20040908
  Receipt Date: 20040812
  Transmission Date: 20050211
  Serious: Yes (Hospitalization, Other)
  Sender: FDA-Public Use
  Company Number: PHHO2004JP11322

PATIENT
  Age: 57 Year
  Sex: Male
  Weight: 54 kg

DRUGS (3)
  1. FTY720 VS MYCOPHENOLATE MOFETIL [Suspect]
     Indication: RENAL TRANSPLANT
     Dosage: CODE NOT BROKEN
     Route: 048
     Dates: start: 20040726, end: 20040822
  2. NEORAL [Suspect]
     Indication: RENAL TRANSPLANT
     Dosage: 140 MG, BID
     Dates: start: 20040728, end: 20040826
  3. MEDROL [Suspect]
     Indication: RENAL TRANSPLANT
     Dosage: 12 MG, QD
     Dates: start: 20040726

REACTIONS (8)
  - ANURIA [None]
  - DISSEMINATED INTRAVASCULAR COAGULATION [None]
  - GRAFT DYSFUNCTION [None]
  - NEPHRECTOMY [None]
  - SEPSIS [None]
  - SURGERY [None]
  - SURGICAL PROCEDURE REPEATED [None]
  - URINARY ANASTOMOTIC LEAK [None]
